FAERS Safety Report 5322692-5 (Version None)
Quarter: 2007Q2

REPORT INFORMATION
  Report Type: 
  Country: None (occurrence: None)
  Receive Date: 20070511
  Receipt Date: 20070430
  Transmission Date: 20071010
  Serious: Yes (Hospitalization, Other)
  Sender: FDA-Public Use
  Company Number: US-PFIZER INC-2006018640

PATIENT
  Sex: Male
  Weight: 79.4 kg

DRUGS (17)
  1. LIPITOR [Suspect]
     Indication: BLOOD CHOLESTEROL INCREASED
  2. LIPITOR [Suspect]
     Indication: ARTERIAL DISORDER
  3. TOPROL-XL [Concomitant]
  4. IMDUR [Concomitant]
  5. NORVASC [Concomitant]
  6. PRILOSEC [Concomitant]
  7. HYTRIN [Concomitant]
  8. ACETYLSALICYLIC ACID SRT [Concomitant]
  9. PLAVIX [Concomitant]
  10. TYLENOL [Concomitant]
  11. GLUCOSAMINE [Concomitant]
  12. VITAMINS [Concomitant]
  13. VITAMIN E [Concomitant]
  14. ZOCOR [Concomitant]
  15. LISINOPRIL [Concomitant]
  16. TERAZOSIN HCL [Concomitant]
  17. ACIDOPHILUS [Concomitant]

REACTIONS (6)
  - ARTHRALGIA [None]
  - CORONARY ARTERY OCCLUSION [None]
  - MUSCULAR WEAKNESS [None]
  - MYALGIA [None]
  - PAIN IN EXTREMITY [None]
  - WRONG TECHNIQUE IN DRUG USAGE PROCESS [None]
